FAERS Safety Report 18676913 (Version 2)
Quarter: 2021Q1

REPORT INFORMATION
  Report Type: Spontaneous
  Country: HR (occurrence: HR)
  Receive Date: 20201229
  Receipt Date: 20210113
  Transmission Date: 20210419
  Serious: Yes (Other)
  Sender: FDA-Public Use
  Company Number: HR-MYLANLABS-2020M1104119

PATIENT
  Sex: Female

DRUGS (9)
  1. PALBOCICLIB [Suspect]
     Active Substance: PALBOCICLIB
     Indication: PRODUCT USED FOR UNKNOWN INDICATION
     Dosage: 100 MG, CYCLIC (100 MG AT MORNING WITH FOOD/ 3 WEEKS, THEN 1 WEEK PAUSE)
     Dates: start: 202003
  2. FULVESTRANT. [Suspect]
     Active Substance: FULVESTRANT
     Indication: PRODUCT USED FOR UNKNOWN INDICATION
     Dosage: 250 MG, 2X/DAY (TWICE DAILY) LAG, 1/14/28 DAY THEN EVERY 28 DAYS
     Route: 030
     Dates: start: 202003
  3. FURSEMID                           /00032601/ [Concomitant]
     Active Substance: FUROSEMIDE
     Dosage: UNK
  4. TRAJENTA [Concomitant]
     Active Substance: LINAGLIPTIN
     Dosage: UNK
  5. FOLACIN                            /00024201/ [Concomitant]
     Active Substance: FOLIC ACID
     Dosage: UNK
  6. PHYSIOTENS [Concomitant]
     Active Substance: MOXONIDINE
     Dosage: UNK
  7. LERCANIL [Concomitant]
     Active Substance: LERCANIDIPINE HYDROCHLORIDE
     Dosage: UNK
  8. INSULIN [Concomitant]
     Active Substance: INSULIN NOS
     Dosage: UNK
  9. GLURENORM [Concomitant]
     Active Substance: GLIQUIDONE
     Dosage: UNK

REACTIONS (6)
  - Neutropenia [Recovering/Resolving]
  - Fatigue [Recovering/Resolving]
  - Blood creatinine increased [Recovering/Resolving]
  - Leukopenia [Recovering/Resolving]
  - Blood urea increased [Recovering/Resolving]
  - Anaemia [Recovering/Resolving]

NARRATIVE: CASE EVENT DATE: 2020
